FAERS Safety Report 7831821-0 (Version None)
Quarter: 2011Q4

REPORT INFORMATION
  Report Type: 
  Country: None (occurrence: None)
  Receive Date: 20111021
  Receipt Date: 20111010
  Transmission Date: 20120403
  Serious: Yes (Other)
  Sender: FDA-Public Use
  Company Number: US-ELI_LILLY_AND_COMPANY-US201110003426

PATIENT
  Sex: Female

DRUGS (5)
  1. HUMALOG MIX 75/25 [Suspect]
     Dosage: 70 U, EACH EVENING
  2. HUMALOG MIX 75/25 [Suspect]
     Indication: DIABETES MELLITUS
     Dosage: 60 U, EACH MORNING
  3. HUMALOG MIX 75/25 [Suspect]
     Dosage: 70 U, EACH EVENING
  4. HUMALOG MIX 75/25 [Suspect]
     Dosage: 15 U, QD
  5. HUMALOG MIX 75/25 [Suspect]
     Dosage: 60 U, EACH MORNING

REACTIONS (4)
  - INCORRECT DOSE ADMINISTERED [None]
  - NON-HODGKIN'S LYMPHOMA [None]
  - FRUSTRATION [None]
  - BLOOD GLUCOSE INCREASED [None]
